FAERS Safety Report 21813009 (Version 1)
Quarter: 2023Q1

REPORT INFORMATION
  Report Type: Spontaneous
  Country: US (occurrence: None)
  Receive Date: 20230102
  Receipt Date: 20230102
  Transmission Date: 20230417
  Serious: Yes (Life-Threatening, Hospitalization, Other)
  Sender: FDA-Public Use
  Company Number: None

PATIENT
  Age: 54 Year
  Sex: Female
  Weight: 72 kg

DRUGS (8)
  1. TAXOL [Suspect]
     Active Substance: PACLITAXEL
     Indication: Neoplasm malignant
     Route: 042
     Dates: start: 20221230, end: 20221230
  2. FOLIC ACID [Concomitant]
     Active Substance: FOLIC ACID
  3. OLANZAPINE [Concomitant]
     Active Substance: OLANZAPINE
  4. Ondanastron [Concomitant]
  5. PROCHLORPERAZINE [Concomitant]
     Active Substance: PROCHLORPERAZINE
  6. ACETAMINOPHEN [Concomitant]
     Active Substance: ACETAMINOPHEN
  7. VITAMINS [Concomitant]
     Active Substance: VITAMINS
  8. Thiamine HCl (VITAMIN B-1) [Concomitant]

REACTIONS (2)
  - Anaphylactic reaction [None]
  - Cardiac arrest [None]

NARRATIVE: CASE EVENT DATE: 20221230
